FAERS Safety Report 8935874 (Version 1)
Quarter: 2012Q4

REPORT INFORMATION
  Report Type: 
  Country: US (occurrence: US)
  Receive Date: 20121130
  Receipt Date: 20121130
  Transmission Date: 20130627
  Serious: No
  Sender: FDA-Public Use
  Company Number: US-ABBOTT-12P-163-0996137-00

PATIENT
  Age: 40 Year
  Sex: Male

DRUGS (2)
  1. ANDROGEL [Suspect]
     Indication: BLOOD TESTOSTERONE DECREASED
     Dosage: 2 pumps daily
     Dates: start: 20120815
  2. VITAMINS WITH MINERALS [Suspect]
     Indication: BLOOD TESTOSTERONE DECREASED
     Dates: end: 2012

REACTIONS (4)
  - Product quality issue [Unknown]
  - Product physical issue [Unknown]
  - Blood testosterone decreased [Unknown]
  - Drug ineffective [Unknown]
